FAERS Safety Report 13495263 (Version 1)
Quarter: 2017Q2

REPORT INFORMATION
  Report Type: Spontaneous
  Country: US (occurrence: US)
  Receive Date: 20170427
  Receipt Date: 20170427
  Transmission Date: 20170830
  Serious: Yes (Life-Threatening)
  Sender: FDA-Public Use
  Company Number: None

PATIENT
  Age: 33 Year
  Sex: Female
  Weight: 67.5 kg

DRUGS (8)
  1. FIBER CHOICE [Concomitant]
  2. XYZAL ALLERGY 24HR [Suspect]
     Active Substance: LEVOCETIRIZINE DIHYDROCHLORIDE
     Indication: MULTIPLE ALLERGIES
     Dosage: ?          QUANTITY:1 TABLET(S);?
     Route: 048
     Dates: start: 20170414, end: 20170415
  3. LORAZEPAM. [Concomitant]
     Active Substance: LORAZEPAM
  4. ALPRAZOLAM. [Concomitant]
     Active Substance: ALPRAZOLAM
  5. FLUTICASONE NASAL SPRAY [Concomitant]
     Active Substance: FLUTICASONE
  6. BENADRYL [Concomitant]
     Active Substance: DIPHENHYDRAMINE HYDROCHLORIDE
  7. EVENING PRIMROSE OIL [Concomitant]
     Active Substance: EVENING PRIMROSE OIL
  8. WOMENS MULTI VITAMIN NEW CHAPTER [Concomitant]

REACTIONS (8)
  - Dizziness [None]
  - Impaired driving ability [None]
  - Palpitations [None]
  - Dyspnoea [None]
  - Pupillary reflex impaired [None]
  - Muscle tightness [None]
  - Feeling abnormal [None]
  - Cough [None]

NARRATIVE: CASE EVENT DATE: 20170414
